FAERS Safety Report 24341369 (Version 1)
Quarter: 2024Q3

REPORT INFORMATION
  Report Type: Spontaneous
  Country: JP (occurrence: JP)
  Receive Date: 20240920
  Receipt Date: 20240920
  Transmission Date: 20241016
  Serious: Yes (Other)
  Sender: ACCORD
  Company Number: JP-Accord-446682

PATIENT
  Age: 75 Year
  Sex: Male

DRUGS (1)
  1. PACLITAXEL [Suspect]
     Active Substance: PACLITAXEL
     Indication: Angiosarcoma

REACTIONS (2)
  - Drug ineffective [Unknown]
  - Lung disorder [Unknown]
